FAERS Safety Report 10334011 (Version 1)
Quarter: 2014Q3

REPORT INFORMATION
  Report Type: Spontaneous
  Country: US (occurrence: US)
  Receive Date: 20140723
  Receipt Date: 20140723
  Transmission Date: 20150326
  Serious: No
  Sender: FDA-Public Use
  Company Number: US-UNITED THERAPEUTICS-UTC-046595

PATIENT
  Age: 54 Year
  Sex: Female

DRUGS (2)
  1. TYVASO [Suspect]
     Active Substance: TREPROSTINIL
     Dosage: 18-54 MICROGRAMS
     Dates: start: 20140320
  2. LETAIRIS [Concomitant]
     Active Substance: AMBRISENTAN

REACTIONS (3)
  - Nasal congestion [Unknown]
  - Nasopharyngitis [Unknown]
  - Hypersensitivity [Unknown]

NARRATIVE: CASE EVENT DATE: 201403
